FAERS Safety Report 9073492 (Version 1)
Quarter: 2013Q1

REPORT INFORMATION
  Report Type: Report from Study
  Country: US (occurrence: US)
  Receive Date: 20130129
  Receipt Date: 20130129
  Transmission Date: 20140127
  Serious: No
  Sender: FDA-Public Use
  Company Number: US-ABBOTT-12P-163-0933742-00

PATIENT
  Age: 20 Year
  Sex: Female

DRUGS (5)
  1. HUMIRA 40 MG/0.8 ML PEN [Suspect]
     Indication: CROHN^S DISEASE
     Dates: start: 201101
  2. ASACOL [Concomitant]
     Indication: PRODUCT USED FOR UNKNOWN INDICATION
     Dosage: THREE PILLS IN ONE DAY
  3. MULTIVITAMIN [Concomitant]
     Indication: VITAMIN SUPPLEMENTATION
  4. CALCIUM [Concomitant]
     Indication: MINERAL SUPPLEMENTATION
  5. VITAMIN D [Concomitant]
     Indication: VITAMIN SUPPLEMENTATION

REACTIONS (2)
  - Upper respiratory tract infection [Not Recovered/Not Resolved]
  - Bronchitis [Not Recovered/Not Resolved]
